FAERS Safety Report 7224302-9 (Version None)
Quarter: 2011Q1

REPORT INFORMATION
  Report Type: 
  Country: None (occurrence: None)
  Receive Date: 20110106
  Receipt Date: 20110106
  Transmission Date: 20110831
  Serious: Yes (Hospitalization)
  Sender: FDA-Public Use
  Company Number: None

PATIENT
  Age: 78 Year
  Sex: Male
  Weight: 103.3 kg

DRUGS (6)
  1. LOVASTATIN [Concomitant]
  2. BENZAPRIL - HCTZ [Concomitant]
  3. VERAPAMIL [Concomitant]
  4. COUMADIN [Suspect]
     Indication: DEEP VEIN THROMBOSIS
     Dosage: 5 MG DAILY PO
     Route: 048
  5. COUMADIN [Suspect]
     Indication: PULMONARY EMBOLISM
     Dosage: 5 MG DAILY PO
     Route: 048
  6. AVODART [Concomitant]

REACTIONS (4)
  - HAEMORRHOIDS [None]
  - GASTRITIS [None]
  - POLYP [None]
  - DIVERTICULUM [None]
